FAERS Safety Report 16240367 (Version 5)
Quarter: 2019Q2

REPORT INFORMATION
  Report Type: Spontaneous
  Country: US (occurrence: US)
  Receive Date: 20190425
  Receipt Date: 20190524
  Transmission Date: 20190711
  Serious: No
  Sender: FDA-Public Use
  Company Number: US-PFIZER INC-2019170423

PATIENT
  Age: 71 Year
  Sex: Male
  Weight: 76.19 kg

DRUGS (6)
  1. TYVASO [Suspect]
     Active Substance: TREPROSTINIL
     Dosage: 36 UG, 4X/DAY (6 BREATHS)
     Route: 055
  2. TYVASO [Suspect]
     Active Substance: TREPROSTINIL
     Dosage: 18 UG, 4X/DAY (3 BREATHS)
     Route: 055
  3. TYVASO [Suspect]
     Active Substance: TREPROSTINIL
     Indication: PULMONARY ARTERIAL HYPERTENSION
     Dosage: 18-54 MICROGRAMS (3-9 BREATHS), 4X/DAY
     Dates: start: 20190329
  4. TYVASO [Suspect]
     Active Substance: TREPROSTINIL
     Dosage: UNK (3-9 BREATHS INHALED)
     Dates: start: 20190329
  5. AMLODIPINE BESILATE [Concomitant]
     Active Substance: AMLODIPINE BESYLATE
     Dosage: UNK
  6. SILDENAFIL CITRATE. [Suspect]
     Active Substance: SILDENAFIL CITRATE
     Dosage: UNK
     Dates: start: 201904

REACTIONS (7)
  - Feeling abnormal [Unknown]
  - Disorientation [Not Recovered/Not Resolved]
  - Visual impairment [Unknown]
  - Cough [Recovered/Resolved]
  - Dyspnoea [Unknown]
  - Malaise [Not Recovered/Not Resolved]
  - Dizziness [Recovered/Resolved]

NARRATIVE: CASE EVENT DATE: 201904
